FAERS Safety Report 8997771 (Version 1)
Quarter: 2013Q1

REPORT INFORMATION
  Report Type: Report from Study
  Country: DE (occurrence: DE)
  Receive Date: 20130104
  Receipt Date: 20130104
  Transmission Date: 20140127
  Serious: Yes (Death, Life-Threatening, Hospitalization, Disabling, Other)
  Sender: FDA-Public Use
  Company Number: DE-ROCHE-1175650

PATIENT
  Age: 74 Year
  Sex: Female

DRUGS (6)
  1. ALTEPLASE [Suspect]
     Indication: MYOCARDIAL INFARCTION
     Route: 042
     Dates: start: 19940331, end: 19940331
  2. HIRUDIN [Suspect]
     Indication: MYOCARDIAL INFARCTION
     Route: 042
     Dates: start: 19940331, end: 19940331
  3. DIAZEPAM [Concomitant]
     Route: 065
     Dates: start: 19940331, end: 19940331
  4. MORPHINE [Concomitant]
     Route: 042
     Dates: start: 19940331, end: 19940331
  5. ASS [Concomitant]
     Route: 048
     Dates: start: 19940331, end: 19940331
  6. NITROGLYCERIN [Concomitant]
     Route: 042
     Dates: start: 19940331, end: 19940331

REACTIONS (8)
  - Pulseless electrical activity [Fatal]
  - Ventricle rupture [Unknown]
  - Bundle branch block left [Unknown]
  - Mydriasis [Unknown]
  - Livedo reticularis [Unknown]
  - Cardiogenic shock [Unknown]
  - Cardiac arrest [Unknown]
  - Respiratory arrest [Unknown]
